FAERS Safety Report 21476580 (Version 1)
Quarter: 2022Q4

REPORT INFORMATION
  Report Type: Spontaneous
  Country: US (occurrence: US)
  Receive Date: 20221019
  Receipt Date: 20221019
  Transmission Date: 20230113
  Serious: No
  Sender: FDA-Public Use
  Company Number: US-CELLTRION INC.-2021US016545

PATIENT

DRUGS (2)
  1. INFLIXIMAB [Suspect]
     Active Substance: INFLIXIMAB
     Indication: Multisystem inflammatory syndrome
     Dosage: 10 MILLIGRAM/KILOGRAM
  2. HUMAN IMMUNOGLOBULIN G [Suspect]
     Active Substance: HUMAN IMMUNOGLOBULIN G
     Indication: Multisystem inflammatory syndrome
     Dosage: 2 G/KG, OFTEN BUT NOT ALWAYS TO A MAXIMUM OF 70 G, AND WAS ADMINISTERED OVER 10 TO 12 OR 20 TO 24 HO
     Route: 042

REACTIONS (2)
  - Rash [Unknown]
  - Off label use [Unknown]
